APPROVED DRUG PRODUCT: RISPERIDONE
Active Ingredient: RISPERIDONE
Strength: 3MG
Dosage Form/Route: TABLET;ORAL
Application: A078040 | Product #005 | TE Code: AB
Applicant: ZYDUS PHARMACEUTICALS USA INC
Approved: Oct 16, 2008 | RLD: No | RS: No | Type: RX